FAERS Safety Report 13802376 (Version 1)
Quarter: 2017Q3

REPORT INFORMATION
  Report Type: Spontaneous
  Country: US (occurrence: US)
  Receive Date: 20170727
  Receipt Date: 20170727
  Transmission Date: 20171127
  Serious: Yes (Other)
  Sender: FDA-Public Use
  Company Number: US-MALLINCKRODT-T201703107

PATIENT
  Age: 57 Year
  Sex: Male

DRUGS (1)
  1. SODIUM IODIDE I 131 [Suspect]
     Active Substance: SODIUM IODIDE I-131
     Indication: PRODUCT USED FOR UNKNOWN INDICATION
     Dosage: 121 MCI, UNK
     Route: 065

REACTIONS (1)
  - Papillary cystadenoma lymphomatosum [Unknown]
